FAERS Safety Report 7602291-2 (Version None)
Quarter: 2011Q3

REPORT INFORMATION
  Report Type: 
  Country: None (occurrence: None)
  Receive Date: 20110711
  Receipt Date: 20110630
  Transmission Date: 20111222
  Serious: Yes (Hospitalization)
  Sender: FDA-Public Use
  Company Number: US-ASTRAZENECA-2010SE56839

PATIENT
  Age: 58 Year
  Sex: Female

DRUGS (5)
  1. NEURONTIN [Concomitant]
  2. NEXIUM [Suspect]
     Route: 048
  3. CRESTOR [Suspect]
     Route: 048
  4. HYDROCODONE BITARTRATE [Concomitant]
  5. CELEBREX [Concomitant]

REACTIONS (10)
  - MUSCLE SPASMS [None]
  - BLOOD GLUCOSE INCREASED [None]
  - NEUROPATHY PERIPHERAL [None]
  - NERVE INJURY [None]
  - SURGERY [None]
  - MENOPAUSE [None]
  - SPINAL MYELOGRAM [None]
  - DEHYDRATION [None]
  - PAIN [None]
  - CONSTIPATION [None]
